FAERS Safety Report 5279856-9 (Version None)
Quarter: 2007Q1

REPORT INFORMATION
  Report Type: 
  Country: None (occurrence: None)
  Receive Date: 20070326
  Receipt Date: 20070326
  Transmission Date: 20070707
  Serious: Yes (Life-Threatening, Hospitalization)
  Sender: FDA-Public Use
  Company Number: None

PATIENT
  Sex: Male
  Weight: 108.8633 kg

DRUGS (1)
  1. ADIPEX-P [Suspect]
     Indication: WEIGHT CONTROL
     Dosage: 1 DAILY PO
     Route: 048

REACTIONS (1)
  - ACUTE MYOCARDIAL INFARCTION [None]
